FAERS Safety Report 9472384 (Version 1)
Quarter: 2013Q3

REPORT INFORMATION
  Report Type: Spontaneous
  Country: US (occurrence: None)
  Receive Date: 20130821
  Receipt Date: 20130821
  Transmission Date: 20140515
  Serious: No
  Sender: FDA-Public Use
  Company Number: None

PATIENT
  Age: 57 Year
  Sex: Female
  Weight: 72.58 kg

DRUGS (1)
  1. NITROFUR-MACR MYLAN [Suspect]
     Indication: URINARY TRACT INFECTION
     Route: 048
     Dates: start: 20130820, end: 20130820

REACTIONS (4)
  - Chest pain [None]
  - Back pain [None]
  - Fatigue [None]
  - Headache [None]
